FAERS Safety Report 7275445-5 (Version None)
Quarter: 2011Q1

REPORT INFORMATION
  Report Type: 
  Country: None (occurrence: None)
  Receive Date: 20110204
  Receipt Date: 20110128
  Transmission Date: 20110831
  Serious: Yes (Other)
  Sender: FDA-Public Use
  Company Number: US-ROCHE-756963

PATIENT
  Age: 52 Year
  Sex: Female

DRUGS (1)
  1. XELODA [Suspect]
     Indication: GASTRIC CANCER
     Route: 048
     Dates: start: 20110113

REACTIONS (4)
  - LEUKOENCEPHALOPATHY [None]
  - ASTHENIA [None]
  - CONVULSION [None]
  - MENTAL STATUS CHANGES [None]
